FAERS Safety Report 6530271-7 (Version None)
Quarter: 2010Q1

REPORT INFORMATION
  Report Type: 
  Country: None (occurrence: None)
  Receive Date: 20100107
  Receipt Date: 20091230
  Transmission Date: 20100710
  Serious: Yes (Death, Hospitalization)
  Sender: FDA-Public Use
  Company Number: CA-ABBOTT-10P-028-0617247-00

PATIENT
  Sex: Male

DRUGS (7)
  1. LUPRON DEPOT [Suspect]
     Indication: PROSTATE CANCER
     Dates: start: 20070206, end: 20090916
  2. XATRAL [Concomitant]
     Indication: PROSTATIC DISORDER
     Dates: start: 20070601
  3. EFFEXOR [Concomitant]
     Indication: DEPRESSION
     Route: 048
     Dates: start: 20040101
  4. CALCIUM W/VITAMIN D [Concomitant]
     Indication: PROPHYLAXIS
     Dates: start: 20070601
  5. DILAUDID [Concomitant]
     Indication: PAIN
     Dates: start: 20070201
  6. MORPHINE [Concomitant]
     Indication: PAIN
  7. CORTISONE [Concomitant]
     Indication: PAIN

REACTIONS (5)
  - ASTHENIA [None]
  - DECREASED APPETITE [None]
  - DEPRESSED LEVEL OF CONSCIOUSNESS [None]
  - FEELING OF DESPAIR [None]
  - OVERDOSE [None]
